FAERS Safety Report 20537067 (Version 1)
Quarter: 2022Q1

REPORT INFORMATION
  Report Type: Spontaneous
  Country: IR (occurrence: IR)
  Receive Date: 20220302
  Receipt Date: 20220302
  Transmission Date: 20220424
  Serious: Yes (Death, Hospitalization)
  Sender: FDA-Public Use
  Company Number: IR-MYLANLABS-2022M1016140

PATIENT
  Age: 80 Year
  Sex: Male

DRUGS (7)
  1. LOPINAVIR\RITONAVIR [Interacting]
     Active Substance: LOPINAVIR\RITONAVIR
     Indication: COVID-19
     Dosage: UNK
     Route: 065
  2. METHYLPREDNISOLONE [Suspect]
     Active Substance: METHYLPREDNISOLONE
     Indication: COVID-19
     Dosage: 250 MILLIGRAM, QD
     Route: 065
  3. ENOXAPARIN [Interacting]
     Active Substance: ENOXAPARIN
     Indication: Anticoagulant therapy
     Dosage: 60 MILLIGRAM, BID
     Route: 065
  4. INTERFERON ALFA-1A [Interacting]
     Active Substance: INTERFERON ALFA-1A
     Indication: COVID-19
     Dosage: UNK
     Route: 065
  5. FAVIPIRAVIR [Interacting]
     Active Substance: FAVIPIRAVIR
     Indication: COVID-19
     Dosage: UNK
     Route: 065
  6. ASPIRIN [Interacting]
     Active Substance: ASPIRIN
     Indication: Antiplatelet therapy
     Dosage: 80 DAILY [UNIT NOT STATED]
     Route: 065
  7. ATORVASTATIN [Interacting]
     Active Substance: ATORVASTATIN
     Indication: Anticoagulant therapy
     Dosage: 40 DAILY [UNIT NOT STATED]
     Route: 065

REACTIONS (4)
  - Haemoperitoneum [Fatal]
  - Drug interaction [Fatal]
  - Off label use [Fatal]
  - Hypotension [Unknown]
